FAERS Safety Report 5154281-X (Version None)
Quarter: 2006Q4

REPORT INFORMATION
  Report Type: 
  Country: None (occurrence: None)
  Receive Date: 20061114
  Receipt Date: 20061106
  Transmission Date: 20070319
  Serious: Yes (Hospitalization)
  Sender: FDA-Public Use
  Company Number: GXKR2006GB07112

PATIENT
  Age: 81 Year
  Sex: Female

DRUGS (7)
  1. CITALOPRAM (NGX) (CITALOPRAM) [Suspect]
     Indication: DEPRESSION
     Dosage: SEE IMAGE
     Route: 048
     Dates: end: 20060929
  2. CITALOPRAM (NGX) (CITALOPRAM) [Suspect]
     Indication: DEPRESSION
     Dosage: SEE IMAGE
     Route: 048
     Dates: start: 20060815
  3. AMIODARONE HCL [Concomitant]
  4. ASPIRIN [Concomitant]
  5. OMEPRAZOLE [Concomitant]
  6. SIMVASTATIN [Concomitant]
  7. SPIRONOLACTONE [Concomitant]

REACTIONS (5)
  - ANXIETY [None]
  - BLOOD SODIUM DECREASED [None]
  - CORONARY ARTERY DISEASE [None]
  - DEPRESSION [None]
  - PULMONARY OEDEMA [None]
